FAERS Safety Report 5480914-4 (Version None)
Quarter: 2007Q4

REPORT INFORMATION
  Report Type: 
  Country: None (occurrence: None)
  Receive Date: 20071009
  Receipt Date: 20070927
  Transmission Date: 20080405
  Serious: Yes (Hospitalization)
  Sender: FDA-Public Use
  Company Number: GB-PFIZER INC-2007055162

PATIENT
  Age: 55 Year
  Sex: Female
  Weight: 60 kg

DRUGS (19)
  1. GABAPENTIN [Interacting]
     Indication: NEURALGIA
     Route: 048
  2. GABAPENTIN [Interacting]
  3. ALFENTANIL [Interacting]
     Indication: GENERAL ANAESTHESIA
     Route: 042
     Dates: start: 20050701, end: 20050701
  4. ALFENTANIL [Interacting]
     Indication: OSTEOTOMY
  5. FENTANYL [Interacting]
     Indication: GENERAL ANAESTHESIA
     Route: 042
     Dates: start: 20060601, end: 20061201
  6. FENTANYL [Interacting]
     Indication: OSTEOTOMY
  7. ISOFLURANE [Interacting]
     Indication: GENERAL ANAESTHESIA
     Route: 055
  8. ISOFLURANE [Interacting]
     Indication: VARICOSE VEIN OPERATION
  9. PROPOFOL [Interacting]
     Indication: GENERAL ANAESTHESIA
     Dosage: FREQ:DAILY: EVERY DAY
     Route: 042
  10. PROPOFOL [Interacting]
     Indication: OSTEOTOMY
  11. DEXAMETHASONE 0.5MG TAB [Suspect]
     Indication: ANAESTHESIA
     Route: 042
     Dates: start: 20050701, end: 20050701
  12. SEVOFLURANE [Interacting]
     Indication: GENERAL ANAESTHESIA
     Route: 055
  13. PARACETAMOL [Concomitant]
  14. CODEINE SUL TAB [Concomitant]
     Indication: PAIN
     Route: 048
  15. OXYGEN [Concomitant]
     Route: 055
  16. ALFENTANIL [Concomitant]
  17. ISOFLURANE [Concomitant]
  18. PROPOFOL [Concomitant]
     Dates: start: 20050701, end: 20050701
  19. SEVOFLURANE [Concomitant]

REACTIONS (4)
  - DRUG INTERACTION [None]
  - DYSTONIA [None]
  - MYOTONIA [None]
  - SINUS TACHYCARDIA [None]
